FAERS Safety Report 10051392 (Version 1)
Quarter: 2014Q2

REPORT INFORMATION
  Report Type: Spontaneous
  Country: US (occurrence: US)
  Receive Date: 20140401
  Receipt Date: 20140401
  Transmission Date: 20141212
  Serious: No
  Sender: FDA-Public Use
  Company Number: US-PFIZER INC-2014090146

PATIENT
  Age: 51 Year
  Sex: Female
  Weight: 47.17 kg

DRUGS (4)
  1. PREMARIN [Suspect]
     Dosage: 5 MG, 1X/DAY
     Route: 067
     Dates: start: 201403
  2. TOPIRAMATE [Concomitant]
     Dosage: UNK
  3. PAROXETINE [Concomitant]
     Dosage: UNK
  4. LORAZEPAM [Concomitant]
     Dosage: UNK

REACTIONS (2)
  - Metrorrhagia [Not Recovered/Not Resolved]
  - Pruritus [Not Recovered/Not Resolved]
